FAERS Safety Report 13069880 (Version 1)
Quarter: 2016Q4

REPORT INFORMATION
  Report Type: Spontaneous
  Country: GB (occurrence: GB)
  Receive Date: 20161228
  Receipt Date: 20161228
  Transmission Date: 20170207
  Serious: Yes (Death, Other)
  Sender: FDA-Public Use
  Company Number: GB-TEVA-724320ACC

PATIENT
  Age: 50 Year
  Sex: Male

DRUGS (11)
  1. OLANZAPINE. [Suspect]
     Active Substance: OLANZAPINE
     Dosage: 7.5 MILLIGRAM DAILY; 7.5 MG, EACH EVENING
     Route: 048
  2. VENLAFAXINE HYDROCHLORIDE. [Concomitant]
     Active Substance: VENLAFAXINE HYDROCHLORIDE
     Dosage: 150 MILLIGRAM DAILY; 150 MG, QD
     Route: 048
     Dates: start: 20070220, end: 20070301
  3. ZOPICLONE [Concomitant]
     Active Substance: ZOPICLONE
     Dosage: 3.75 MILLIGRAM DAILY; 3.75 MG, EACH EVENING
     Route: 065
     Dates: start: 20050425
  4. VENLAFAXINE HYDROCHLORIDE. [Concomitant]
     Active Substance: VENLAFAXINE HYDROCHLORIDE
     Dosage: 75 MILLIGRAM DAILY; 75 MG, EACH EVENING
     Route: 048
     Dates: start: 200512, end: 20070220
  5. VENLAFAXINE HYDROCHLORIDE. [Concomitant]
     Active Substance: VENLAFAXINE HYDROCHLORIDE
     Dosage: 150 MILLIGRAM DAILY; 150 MG, EACH MORNING
     Route: 048
     Dates: start: 20050425, end: 200512
  6. OLANZAPINE. [Suspect]
     Active Substance: OLANZAPINE
     Dosage: 10 MILLIGRAM DAILY; 10 MG, EACH EVENING
     Route: 048
     Dates: start: 20050425
  7. VENLAFAXINE HYDROCHLORIDE. [Concomitant]
     Active Substance: VENLAFAXINE HYDROCHLORIDE
     Dosage: 225 MILLIGRAM DAILY; 225 MG, QD
     Route: 048
     Dates: start: 20070301
  8. OLANZAPINE. [Suspect]
     Active Substance: OLANZAPINE
     Dosage: 5 MILLIGRAM DAILY; 5 MG, EACH MORNING
     Route: 048
     Dates: start: 20050425
  9. LORAZEPAM. [Concomitant]
     Active Substance: LORAZEPAM
     Indication: ANXIETY
     Dosage: 1 MG, PRN
     Route: 048
  10. LORAZEPAM. [Concomitant]
     Active Substance: LORAZEPAM
     Dosage: 2 MG, PRN
     Route: 048
  11. OLANZAPINE. [Suspect]
     Active Substance: OLANZAPINE
     Indication: PRODUCT USED FOR UNKNOWN INDICATION
     Dosage: 10 MILLIGRAM DAILY; 10 MG, EACH EVENING
     Route: 048
     Dates: start: 20070402

REACTIONS (9)
  - Completed suicide [Fatal]
  - Suicidal ideation [Unknown]
  - Ankle fracture [Unknown]
  - Negative thoughts [Unknown]
  - Suicide attempt [Unknown]
  - Moaning [Unknown]
  - Decreased appetite [Unknown]
  - Anxiety [Unknown]
  - Decreased activity [Unknown]

NARRATIVE: CASE EVENT DATE: 2007
